FAERS Safety Report 4522393-7 (Version None)
Quarter: 2004Q4

REPORT INFORMATION
  Report Type: 
  Country: None (occurrence: None)
  Receive Date: 20041209
  Receipt Date: 20041206
  Transmission Date: 20050328
  Serious: Yes (Death)
  Sender: FDA-Public Use
  Company Number: PHBS2004BR16309

PATIENT
  Age: 2 Month
  Sex: Male

DRUGS (2)
  1. TRILEPTAL [Suspect]
  2. RINOSORO [Concomitant]

REACTIONS (3)
  - DEATH [None]
  - DRUG EXPOSURE VIA BREAST MILK [None]
  - UNRESPONSIVE TO PAIN STIMULI [None]
